FAERS Safety Report 9243038 (Version 1)
Quarter: 2013Q2

REPORT INFORMATION
  Report Type: Spontaneous
  Country: US (occurrence: US)
  Receive Date: 20130419
  Receipt Date: 20130419
  Transmission Date: 20140414
  Serious: Yes (Death)
  Sender: FDA-Public Use
  Company Number: US-ELI_LILLY_AND_COMPANY-US201304005013

PATIENT
  Age: 53 Year
  Sex: Male

DRUGS (1)
  1. GEMZAR [Suspect]
     Dosage: UNK
     Dates: start: 20120419

REACTIONS (1)
  - Death [Fatal]
